FAERS Safety Report 5992217-X (Version None)
Quarter: 2008Q4

REPORT INFORMATION
  Report Type: 
  Country: None (occurrence: None)
  Receive Date: 20081211
  Receipt Date: 20080513
  Transmission Date: 20090506
  Serious: No
  Sender: FDA-Public Use
  Company Number: US-AMGEN-KDL275062

PATIENT
  Sex: Female
  Weight: 89 kg

DRUGS (5)
  1. ENBREL [Suspect]
     Indication: RHEUMATOID ARTHRITIS
     Route: 058
     Dates: start: 20030701
  2. METHOTREXATE [Concomitant]
  3. PLAQUENIL [Concomitant]
     Dates: start: 20071201
  4. LIDODERM [Concomitant]
     Dates: start: 20061001
  5. PREVACID [Concomitant]
     Dates: start: 20071201

REACTIONS (8)
  - ANAEMIA [None]
  - CATARACT [None]
  - DIARRHOEA [None]
  - INJECTION SITE HAEMORRHAGE [None]
  - PLATELET COUNT ABNORMAL [None]
  - SLEEP DISORDER [None]
  - STRESS [None]
  - WEIGHT INCREASED [None]
